FAERS Safety Report 5714609-6 (Version None)
Quarter: 2008Q2

REPORT INFORMATION
  Report Type: 
  Country: None (occurrence: None)
  Receive Date: 20080423
  Receipt Date: 20080418
  Transmission Date: 20081010
  Serious: Yes (Death, Congenital Anomaly)
  Sender: FDA-Public Use
  Company Number: B0430222A

PATIENT
  Sex: Female

DRUGS (2)
  1. COMBIVIR [Suspect]
     Dosage: 1U TWICE PER DAY
     Dates: start: 20060213, end: 20060306
  2. KALETRA [Suspect]
     Dosage: 3U TWICE PER DAY
     Dates: start: 20060213, end: 20060306

REACTIONS (4)
  - DOUBLE OUTLET RIGHT VENTRICLE [None]
  - STILLBIRTH [None]
  - VENTRICULAR SEPTAL DEFECT [None]
  - WEIGHT DECREASED [None]
